FAERS Safety Report 7707281-7 (Version None)
Quarter: 2011Q3

REPORT INFORMATION
  Report Type: 
  Country: None (occurrence: None)
  Receive Date: 20110824
  Receipt Date: 20110816
  Transmission Date: 20111222
  Serious: Yes (Hospitalization, Other)
  Sender: FDA-Public Use
  Company Number: PHHY2010CA07672

PATIENT
  Sex: Male

DRUGS (10)
  1. EXJADE [Suspect]
     Indication: IRON OVERLOAD
     Dosage: 1000 MG, BID
     Route: 048
     Dates: start: 20100111
  2. VITAMIN E [Concomitant]
  3. MORPHINE [Concomitant]
  4. CALCIUM CARBONATE [Concomitant]
  5. FLONASE [Concomitant]
     Indication: MULTIPLE ALLERGIES
  6. FOLIC ACID [Concomitant]
  7. EXJADE [Suspect]
     Indication: THALASSAEMIA
     Dosage: 2000 MG, QD
     Route: 048
     Dates: start: 20090101
  8. DESFERAL [Suspect]
  9. TESTIM [Concomitant]
  10. GRAVOL TAB [Concomitant]

REACTIONS (8)
  - DECREASED APPETITE [None]
  - ABDOMINAL DISCOMFORT [None]
  - EYE ALLERGY [None]
  - ABDOMINAL PAIN UPPER [None]
  - DRY EYE [None]
  - NAUSEA [None]
  - DIARRHOEA [None]
  - SERUM FERRITIN INCREASED [None]
